FAERS Safety Report 20957438 (Version 1)
Quarter: 2022Q2

REPORT INFORMATION
  Report Type: Spontaneous
  Country: US (occurrence: None)
  Receive Date: 20220614
  Receipt Date: 20220614
  Transmission Date: 20220721
  Serious: No
  Sender: FDA-Public Use
  Company Number: 2022A191226

PATIENT
  Age: 24764 Day
  Sex: Female
  Weight: 88.5 kg

DRUGS (1)
  1. TEZSPIRE [Suspect]
     Active Substance: TEZEPELUMAB-EKKO
     Indication: Asthma
     Dosage: EVERY FOUR WEEKS
     Route: 058
     Dates: start: 2022

REACTIONS (3)
  - Cough [Recovering/Resolving]
  - Sleep disorder [Not Recovered/Not Resolved]
  - COVID-19 [Recovered/Resolved with Sequelae]

NARRATIVE: CASE EVENT DATE: 20220425
